FAERS Safety Report 8386644-3 (Version None)
Quarter: 2012Q2

REPORT INFORMATION
  Report Type: 
  Country: None (occurrence: None)
  Receive Date: 20120525
  Receipt Date: 20120522
  Transmission Date: 20120825
  Serious: No
  Sender: FDA-Public Use
  Company Number: US-PFIZER INC-2012124455

PATIENT
  Sex: Male
  Weight: 79 kg

DRUGS (3)
  1. GABAPENTIN [Suspect]
     Indication: HERPES ZOSTER
     Dosage: 600 MG, DAILY AT NOON
     Dates: start: 20120516, end: 20120501
  2. GABAPENTIN [Suspect]
     Dosage: 600 MG, 2X/DAY
     Dates: start: 20120501
  3. MAXZIDE [Concomitant]
     Indication: HYPERTENSION
     Dosage: 25/37.5 MG, DAILY

REACTIONS (1)
  - OEDEMA PERIPHERAL [None]
